FAERS Safety Report 20104869 (Version 3)
Quarter: 2022Q1

REPORT INFORMATION
  Report Type: Spontaneous
  Country: SI (occurrence: SI)
  Receive Date: 20211124
  Receipt Date: 20220117
  Transmission Date: 20220423
  Serious: Yes (Hospitalization, Other)
  Sender: FDA-Public Use
  Company Number: SI-009507513-2111SVN004646

PATIENT
  Sex: Male

DRUGS (1)
  1. IVERMECTIN [Suspect]
     Active Substance: IVERMECTIN
     Indication: COVID-19
     Dosage: UNK

REACTIONS (7)
  - COVID-19 pneumonia [Recovering/Resolving]
  - Muscle discomfort [Recovering/Resolving]
  - Insomnia [Recovering/Resolving]
  - Movement disorder [Recovering/Resolving]
  - Balance disorder [Recovering/Resolving]
  - Weight decreased [Recovering/Resolving]
  - Drug ineffective for unapproved indication [Unknown]
